FAERS Safety Report 5234456-1 (Version None)
Quarter: 2007Q1

REPORT INFORMATION
  Report Type: 
  Country: None (occurrence: None)
  Receive Date: 20070209
  Receipt Date: 20070131
  Transmission Date: 20070707
  Serious: Yes (Other)
  Sender: FDA-Public Use
  Company Number: GB-GLAXOSMITHKLINE-B0454889A

PATIENT
  Age: 47 Year
  Sex: Male

DRUGS (4)
  1. REQUIP [Suspect]
     Indication: PARKINSON'S DISEASE
     Route: 048
     Dates: start: 20060101
  2. MONOAMINE OXIDASE INHIBITOR [Concomitant]
  3. UNKNOWN NAME [Concomitant]
  4. PRAMIPEXOLE DIHYDROCHLORIDE [Concomitant]

REACTIONS (12)
  - BLOOD PRESSURE INCREASED [None]
  - CHEST EXPANSION DECREASED [None]
  - DIZZINESS [None]
  - DYSPNOEA [None]
  - HEART RATE INCREASED [None]
  - HYPOVENTILATION [None]
  - ILL-DEFINED DISORDER [None]
  - LABILE BLOOD PRESSURE [None]
  - MUSCLE RIGIDITY [None]
  - PRODUCTIVE COUGH [None]
  - SUFFOCATION FEELING [None]
  - TACHYCARDIA [None]
